FAERS Safety Report 25305058 (Version 2)
Quarter: 2025Q2

REPORT INFORMATION
  Report Type: Spontaneous
  Country: GB (occurrence: None)
  Receive Date: 20250513
  Receipt Date: 20250515
  Transmission Date: 20250717
  Serious: Yes (Other)
  Sender: INCYTE
  Company Number: GB-002147023-NVSC2025GB074058

PATIENT
  Age: 86 Year

DRUGS (3)
  1. RUXOLITINIB [Suspect]
     Active Substance: RUXOLITINIB
     Indication: Myelofibrosis
     Route: 065
  2. PACRITINIB [Concomitant]
     Active Substance: PACRITINIB
     Indication: Myelofibrosis
     Dosage: 200 MG, BID
     Route: 065
  3. MOMELOTINIB DIHYDROCHLORIDE [Concomitant]
     Active Substance: MOMELOTINIB DIHYDROCHLORIDE
     Indication: Product used for unknown indication
     Route: 065

REACTIONS (3)
  - Myelofibrosis [Unknown]
  - Malignant neoplasm progression [Unknown]
  - Performance status decreased [Unknown]
